FAERS Safety Report 20564394 (Version 2)
Quarter: 2022Q1

REPORT INFORMATION
  Report Type: Spontaneous
  Country: FR (occurrence: FR)
  Receive Date: 20220308
  Receipt Date: 20220321
  Transmission Date: 20220423
  Serious: Yes (Hospitalization, Congenital Anomaly, Other)
  Sender: FDA-Public Use
  Company Number: FR-ABBVIE-22K-056-4306501-00

PATIENT
  Sex: Male
  Weight: 2.03 kg

DRUGS (9)
  1. VALPROATE SODIUM [Suspect]
     Active Substance: VALPROATE SODIUM
     Indication: Maternal exposure timing unspecified
     Route: 064
  2. FOLIC ACID [Concomitant]
     Active Substance: FOLIC ACID
     Indication: Maternal exposure timing unspecified
  3. CHOLECALCIFEROL [Concomitant]
     Active Substance: CHOLECALCIFEROL
     Indication: Maternal exposure timing unspecified
  4. POLYETHYLENE GLYCOL 4000 [Concomitant]
     Active Substance: POLYETHYLENE GLYCOL 4000
     Indication: Maternal exposure timing unspecified
  5. ALBUTEROL SULFATE [Concomitant]
     Active Substance: ALBUTEROL SULFATE
     Indication: Maternal exposure timing unspecified
  6. ADALATE LA [Concomitant]
     Indication: Maternal exposure timing unspecified
  7. NIFEDIPINE [Concomitant]
     Active Substance: NIFEDIPINE
     Indication: Maternal exposure timing unspecified
  8. UTROGESTAN [Concomitant]
     Active Substance: PROGESTERONE
     Indication: Maternal exposure timing unspecified
  9. TRIMEBUTINE [Concomitant]
     Active Substance: TRIMEBUTINE
     Indication: Maternal exposure timing unspecified

REACTIONS (37)
  - Plagiocephaly [Unknown]
  - Congenital jaw malformation [Unknown]
  - Hydrocele [Unknown]
  - Hypotonia [Unknown]
  - Fine motor skill dysfunction [Unknown]
  - Coordination abnormal [Unknown]
  - Behaviour disorder [Unknown]
  - Dysarthria [Unknown]
  - Speech disorder developmental [Unknown]
  - Language disorder [Unknown]
  - Frustration tolerance decreased [Unknown]
  - Memory impairment [Unknown]
  - Attention deficit hyperactivity disorder [Unknown]
  - Dysmorphism [Unknown]
  - Limb discomfort [Unknown]
  - Social avoidant behaviour [Unknown]
  - Gait disturbance [Unknown]
  - Gastrooesophageal reflux disease [Unknown]
  - Nasopharyngitis [Unknown]
  - Ear infection [Unknown]
  - Astigmatism [Unknown]
  - Strabismus [Unknown]
  - Fatigue [Unknown]
  - Motor developmental delay [Unknown]
  - Joint laxity [Unknown]
  - Cognitive disorder [Unknown]
  - Learning disorder [Unknown]
  - Loss of personal independence in daily activities [Unknown]
  - Asthma [Unknown]
  - Drooling [Unknown]
  - Psychiatric symptom [Unknown]
  - Gastroenteritis [Unknown]
  - Bronchitis [Unknown]
  - Anxiety [Unknown]
  - Diarrhoea [Unknown]
  - Pyrexia [Unknown]
  - Foetal exposure during pregnancy [Unknown]

NARRATIVE: CASE EVENT DATE: 20071125
